FAERS Safety Report 20298307 (Version 1)
Quarter: 2022Q1

REPORT INFORMATION
  Report Type: Report from Study
  Country: FR (occurrence: None)
  Receive Date: 20220105
  Receipt Date: 20220105
  Transmission Date: 20220423
  Serious: Yes (Life-Threatening)
  Sender: FDA-Public Use
  Company Number: FR-ROCHE-2990015

PATIENT
  Age: 72 Year
  Sex: Female

DRUGS (5)
  1. ATEZOLIZUMAB [Suspect]
     Active Substance: ATEZOLIZUMAB
     Indication: Ovarian cancer
     Dosage: 28-OCT-2021 THE PATIENT RECEIVED LAST DOSE OF ATEZOLIZUMAB BEFORE THE EVENT.
     Route: 041
     Dates: start: 20190802, end: 20211028
  2. BEVACIZUMAB [Suspect]
     Active Substance: BEVACIZUMAB
     Indication: Ovarian cancer
     Dosage: ON 22-APR-2021 THE PATIENT RECEIVED LAST DOSE OF BEVACIZUMAB BEFORE THE EVENT.
     Route: 042
     Dates: start: 20190308, end: 20210422
  3. CARBOPLATIN [Concomitant]
     Active Substance: CARBOPLATIN
     Indication: Ovarian cancer
     Route: 042
     Dates: start: 20190207, end: 20190703
  4. DOXORUBICIN [Concomitant]
     Active Substance: DOXORUBICIN
     Indication: Ovarian cancer
     Route: 042
     Dates: start: 20190207, end: 20190703
  5. OLAPARIB [Concomitant]
     Active Substance: OLAPARIB
     Indication: Ovarian cancer
     Route: 048
     Dates: start: 20170414, end: 20181126

REACTIONS (1)
  - Myelodysplastic syndrome [Not Recovered/Not Resolved]

NARRATIVE: CASE EVENT DATE: 20211119
